FAERS Safety Report 5050035-3 (Version None)
Quarter: 2006Q2

REPORT INFORMATION
  Report Type: 
  Country: None (occurrence: None)
  Receive Date: 20060601
  Receipt Date: 20060216
  Transmission Date: 20061013
  Serious: No
  Sender: FDA-Public Use
  Company Number: US200602003546

PATIENT
  Age: 40 Year
  Sex: Female

DRUGS (1)
  1. CYMBALTA [Suspect]
     Indication: BURNING SENSATION
     Dosage: 30 MG, DAILY (1/D)
     Dates: start: 20051001

REACTIONS (4)
  - HAIR TEXTURE ABNORMAL [None]
  - NAUSEA [None]
  - POLLAKIURIA [None]
  - VISION BLURRED [None]
